FAERS Safety Report 5558133-2 (Version None)
Quarter: 2007Q4

REPORT INFORMATION
  Report Type: 
  Country: None (occurrence: None)
  Receive Date: 20071211
  Receipt Date: 20071130
  Transmission Date: 20080405
  Serious: Yes (Disabling, Other)
  Sender: FDA-Public Use
  Company Number: GXKR2007GB10313

PATIENT
  Age: 38 Year
  Sex: Female

DRUGS (7)
  1. GABAPENTIN [Suspect]
     Indication: NEURALGIA
     Dosage: 3000 MG, QD ORAL : 300 MG, TID, ORAL
     Route: 048
  2. VARENICLINE TARTRATE(VARENICLINE TARTRATE) [Suspect]
     Indication: SMOKING CESSATION THERAPY
     Dosage: 1 MG, BID, ORAL
     Route: 048
     Dates: start: 20071031, end: 20071119
  3. CLENIL (BECLOMETASONE DIPROPIONATE) [Concomitant]
  4. ORAMORPH SR [Concomitant]
  5. ALBUTEROL [Concomitant]
  6. TIBOLONE [Concomitant]
  7. TRAMADOL HCL [Concomitant]

REACTIONS (5)
  - ABDOMINAL PAIN [None]
  - ABDOMINAL TENDERNESS [None]
  - CONFUSIONAL STATE [None]
  - DIZZINESS [None]
  - NAUSEA [None]
